FAERS Safety Report 13096949 (Version 4)
Quarter: 2018Q2

REPORT INFORMATION
  Report Type: Spontaneous
  Country: US (occurrence: US)
  Receive Date: 20170109
  Receipt Date: 20180622
  Transmission Date: 20180711
  Serious: Yes (Death, Life-Threatening, Hospitalization, Other)
  Sender: FDA-Public Use
  Company Number: US-PFIZER INC-2017004411

PATIENT
  Sex: Male

DRUGS (3)
  1. PACERONE [Suspect]
     Active Substance: AMIODARONE HYDROCHLORIDE
     Indication: ATRIAL FIBRILLATION
  2. AMIODARONE [Suspect]
     Active Substance: AMIODARONE
     Indication: ATRIAL FIBRILLATION
     Dosage: UNK
  3. CORDARONE [Suspect]
     Active Substance: AMIODARONE HYDROCHLORIDE
     Indication: ATRIAL FIBRILLATION
     Dosage: 200 MG, UNK
     Route: 048
     Dates: start: 201602

REACTIONS (11)
  - Blindness [Unknown]
  - Fatigue [Unknown]
  - Dyspnoea [Unknown]
  - Gait inability [Unknown]
  - Respiratory failure [Unknown]
  - Cardiac failure [Unknown]
  - Asthenia [Unknown]
  - Cough [Unknown]
  - Pulmonary fibrosis [Fatal]
  - Wheezing [Unknown]
  - Chest pain [Unknown]

NARRATIVE: CASE EVENT DATE: 201603
